FAERS Safety Report 8025673-6 (Version None)
Quarter: 2012Q1

REPORT INFORMATION
  Report Type: 
  Country: None (occurrence: None)
  Receive Date: 20120105
  Receipt Date: 20111205
  Transmission Date: 20120608
  Serious: Yes (Hospitalization, Other)
  Sender: FDA-Public Use
  Company Number: IN-BAXTER-2012BH000187

PATIENT
  Age: 22 Year
  Sex: Male
  Weight: 55 kg

DRUGS (1)
  1. ALBUMIN (HUMAN) [Suspect]
     Indication: PRODUCT USED FOR UNKNOWN INDICATION
     Route: 042

REACTIONS (3)
  - BLISTER [None]
  - GENERALISED ERYTHEMA [None]
  - BRONCHOSPASM [None]
